FAERS Safety Report 24910440 (Version 1)
Quarter: 2025Q1

REPORT INFORMATION
  Report Type: Spontaneous
  Country: US (occurrence: US)
  Receive Date: 20250131
  Receipt Date: 20250131
  Transmission Date: 20250409
  Serious: Yes (Other)
  Sender: ANI
  Company Number: US-ANIPHARMA-2025-US-003774

PATIENT
  Age: 0 Year
  Sex: Male

DRUGS (1)
  1. TERBUTALINE SULFATE [Suspect]
     Active Substance: TERBUTALINE SULFATE
     Indication: Foetal exposure during pregnancy
     Route: 064
     Dates: start: 199706

REACTIONS (9)
  - Foetal exposure during pregnancy [Recovered/Resolved]
  - Autism spectrum disorder [Unknown]
  - Asthma [Unknown]
  - Attention deficit hyperactivity disorder [Unknown]
  - Bipolar disorder [Unknown]
  - Premature baby [Unknown]
  - Anxiety [Not Recovered/Not Resolved]
  - Suicide attempt [Unknown]
  - Ear infection [Unknown]

NARRATIVE: CASE EVENT DATE: 19970601
